FAERS Safety Report 8774888 (Version 2)
Quarter: 2012Q4

REPORT INFORMATION
  Report Type: 
  Country: US (occurrence: US)
  Receive Date: 20120910
  Receipt Date: 20121204
  Transmission Date: 20130627
  Serious: Yes (Other)
  Sender: FDA-Public Use
  Company Number: US-009507513-1209USA001895

PATIENT
  Age: 73 Year
  Sex: Male
  Weight: 109.3 kg

DRUGS (3)
  1. JANUVIA [Suspect]
     Indication: DIABETES MELLITUS
     Dosage: 100 mg, qd
     Route: 048
     Dates: start: 20120628, end: 20120821
  2. LANTUS [Concomitant]
     Indication: DIABETES MELLITUS
     Dosage: 60 IU, qd
     Route: 058
  3. GLIMEPIRIDE [Concomitant]
     Indication: DIABETES MELLITUS
     Dosage: 4 mg, bid
     Route: 048

REACTIONS (1)
  - Pancreatitis acute [Recovered/Resolved]
